FAERS Safety Report 8020312-2 (Version None)
Quarter: 2012Q1

REPORT INFORMATION
  Report Type: 
  Country: None (occurrence: None)
  Receive Date: 20120103
  Receipt Date: 20111221
  Transmission Date: 20120608
  Serious: Yes (Life-Threatening)
  Sender: FDA-Public Use
  Company Number: GB-SANOFI-AVENTIS-2011SA084033

PATIENT
  Age: 65 Year
  Sex: Male

DRUGS (13)
  1. PREDNISONE TAB [Concomitant]
  2. PREGABALIN [Concomitant]
  3. SIMVASTATIN [Concomitant]
  4. CITALOPRAM [Concomitant]
  5. OMEPRAZOLE [Concomitant]
  6. FLUTICASONE PROPIONATE/SALMETEROL [Concomitant]
  7. ASPIRIN [Concomitant]
  8. ALBUTEROL SULFATE AUTOHALER [Concomitant]
     Route: 055
  9. TIOPRONIN [Concomitant]
  10. LEFLUNOMIDE [Suspect]
     Route: 065
  11. BENDROFLUMETHIAZIDE [Concomitant]
  12. AMLODIPINE [Concomitant]
  13. TAMSULOSIN HCL [Concomitant]

REACTIONS (1)
  - CEREBROVASCULAR ACCIDENT [None]
